FAERS Safety Report 16739242 (Version 1)
Quarter: 2019Q3

REPORT INFORMATION
  Report Type: Spontaneous
  Country: GB (occurrence: GB)
  Receive Date: 20190826
  Receipt Date: 20190826
  Transmission Date: 20191005
  Serious: Yes (Other)
  Sender: FDA-Public Use
  Company Number: GB-TEVA-2019-GB-1096125

PATIENT
  Age: 52 Year
  Sex: Female

DRUGS (3)
  1. RAMIPRIL. [Suspect]
     Active Substance: RAMIPRIL
     Indication: HYPERTENSION
     Dosage: 10 MILLIGRAM
     Route: 048
     Dates: start: 20190218, end: 20190531
  2. AMLODIPINE [Concomitant]
     Active Substance: AMLODIPINE BESYLATE
  3. KLIOVANCE [Concomitant]
     Active Substance: ESTRADIOL\NORETHINDRONE ACETATE

REACTIONS (4)
  - Blister [Recovered/Resolved]
  - Burning sensation [Recovered/Resolved]
  - Cough [Recovered/Resolved]
  - Pain in extremity [Recovered/Resolved]
